FAERS Safety Report 16370478 (Version 2)
Quarter: 2019Q2

REPORT INFORMATION
  Report Type: Spontaneous
  Country: HU (occurrence: HU)
  Receive Date: 20190530
  Receipt Date: 20190603
  Transmission Date: 20190711
  Serious: Yes (Death, Hospitalization)
  Sender: FDA-Public Use
  Company Number: HU-AXELLIA-002486

PATIENT
  Age: 73 Year
  Sex: Female

DRUGS (2)
  1. VANCOMYCIN [Suspect]
     Active Substance: VANCOMYCIN
     Indication: PERITONITIS
     Dosage: 1500 MG IN EVERY 5TH DAYS
     Route: 033
     Dates: start: 20170704, end: 20170727
  2. CIPROBAY [Suspect]
     Active Substance: CIPROFLOXACIN
     Indication: PERITONITIS
     Dosage: 500 MG, BID
     Route: 048
     Dates: start: 20170704

REACTIONS (2)
  - Toxic epidermal necrolysis [Fatal]
  - Stevens-Johnson syndrome [Fatal]

NARRATIVE: CASE EVENT DATE: 20170728
